FAERS Safety Report 17433926 (Version 1)
Quarter: 2020Q1

REPORT INFORMATION
  Report Type: Spontaneous
  Country: CA (occurrence: CA)
  Receive Date: 20200219
  Receipt Date: 20200219
  Transmission Date: 20200409
  Serious: Yes (Hospitalization, Other)
  Sender: FDA-Public Use
  Company Number: CA-APOTEX-2020AP007920

PATIENT
  Age: 11 Year
  Sex: Male

DRUGS (4)
  1. METOPROLOL. [Suspect]
     Active Substance: METOPROLOL
     Dosage: 25 MG, TID
     Route: 065
  2. AMIODARONE [Suspect]
     Active Substance: AMIODARONE
     Indication: VENTRICULAR EXTRASYSTOLES
     Dosage: UNK
     Route: 065
  3. METOPROLOL. [Suspect]
     Active Substance: METOPROLOL
     Indication: VENTRICULAR TACHYCARDIA
     Dosage: 25 MG, BID
     Route: 065
  4. FLECAINIDE [Suspect]
     Active Substance: FLECAINIDE
     Indication: VENTRICULAR TACHYCARDIA
     Dosage: 50 MG, BID
     Route: 065

REACTIONS (6)
  - Ventricular tachycardia [Recovered/Resolved]
  - Toxicity to various agents [Unknown]
  - Ventricular fibrillation [Recovered/Resolved]
  - Cardiac arrest [Recovered/Resolved]
  - Bradycardia [Recovered/Resolved]
  - Drug ineffective [Unknown]
